FAERS Safety Report 9690435 (Version 1)
Quarter: 2013Q4

REPORT INFORMATION
  Report Type: Spontaneous
  Country: US (occurrence: None)
  Receive Date: 20131114
  Receipt Date: 20131114
  Transmission Date: 20140711
  Serious: Yes (Other)
  Sender: FDA-Public Use
  Company Number: None

PATIENT
  Age: 60 Year
  Sex: Male
  Weight: 88.6 kg

DRUGS (9)
  1. BYETTA INJECTION [Suspect]
     Indication: TYPE 2 DIABETES MELLITUS
     Route: 058
     Dates: start: 200708, end: 201311
  2. METFORMIN [Concomitant]
  3. NAPROXEN [Concomitant]
  4. ATORVASTATIN [Concomitant]
  5. ISOSORBIDE MONONITRATE [Concomitant]
  6. TIZANIDINE [Concomitant]
  7. CLONAZEPAM [Concomitant]
  8. CLOPIDOGREL [Concomitant]
  9. ENALAPRIL [Concomitant]

REACTIONS (2)
  - Treatment noncompliance [None]
  - Pain [None]
